FAERS Safety Report 10109390 (Version 1)
Quarter: 2014Q2

REPORT INFORMATION
  Report Type: Spontaneous
  Country: IT (occurrence: None)
  Receive Date: 20140423
  Receipt Date: 20140423
  Transmission Date: 20141212
  Serious: Yes (Other)
  Sender: FDA-Public Use
  Company Number: 2294406

PATIENT
  Age: 39 Year
  Sex: Female

DRUGS (1)
  1. DOCETAXEL [Suspect]
     Indication: BREAST CANCER
     Dosage: CYCLICAL , (NOT OTHERWISE SPECIFIED)
     Route: 042
     Dates: start: 20140225, end: 20140320

REACTIONS (4)
  - Confusional state [None]
  - Tinnitus [None]
  - Erythema [None]
  - Hypoacusis [None]
